FAERS Safety Report 9638375 (Version 4)
Quarter: 2013Q4

REPORT INFORMATION
  Report Type: Spontaneous
  Country: JP (occurrence: JP)
  Receive Date: 20131022
  Receipt Date: 20131119
  Transmission Date: 20140711
  Serious: Yes (Other)
  Sender: FDA-Public Use
  Company Number: JP-GLAXOSMITHKLINE-B0932690A

PATIENT
  Age: 80 Year
  Sex: Female

DRUGS (4)
  1. REVOLADE [Suspect]
     Indication: IMMUNE THROMBOCYTOPENIC PURPURA
     Dosage: 12.5MG PER DAY
     Route: 048
     Dates: start: 20130930
  2. PREDONINE [Concomitant]
     Indication: IMMUNE THROMBOCYTOPENIC PURPURA
     Dosage: 15MG PER DAY
     Route: 048
  3. THYRADIN [Concomitant]
     Indication: HYPOTHYROIDISM
     Dosage: 75MCG PER DAY
     Route: 048
  4. ALLEGRA [Concomitant]
     Dosage: 120MG PER DAY
     Route: 048

REACTIONS (5)
  - Cerebral infarction [Recovering/Resolving]
  - Paralysis [Recovering/Resolving]
  - Movement disorder [Recovering/Resolving]
  - Muscular weakness [Recovering/Resolving]
  - Gait disturbance [Recovering/Resolving]
